FAERS Safety Report 5809728-X (Version None)
Quarter: 2008Q3

REPORT INFORMATION
  Report Type: 
  Country: None (occurrence: None)
  Receive Date: 20080714
  Receipt Date: 20080714
  Transmission Date: 20090109
  Serious: No
  Sender: FDA-Public Use
  Company Number: None

PATIENT
  Age: 24 Year
  Sex: Female
  Weight: 47.6277 kg

DRUGS (1)
  1. BUPROPION HCL [Suspect]
     Dosage: 150MG BID PO
     Route: 048

REACTIONS (2)
  - DIZZINESS [None]
  - TREMOR [None]
